FAERS Safety Report 14372509 (Version 2)
Quarter: 2018Q1

REPORT INFORMATION
  Report Type: Report from Study
  Country: US (occurrence: US)
  Receive Date: 20180110
  Receipt Date: 20180123
  Transmission Date: 20180509
  Serious: Yes (Death, Other)
  Sender: FDA-Public Use
  Company Number: US-GILEAD-2018-0315133

PATIENT
  Age: 70 Year
  Sex: Male

DRUGS (12)
  1. PREDNISONE. [Concomitant]
     Active Substance: PREDNISONE
  2. PRADAXA [Concomitant]
     Active Substance: DABIGATRAN ETEXILATE MESYLATE
  3. AMBRISENTAN [Suspect]
     Active Substance: AMBRISENTAN
     Indication: PRODUCT USED FOR UNKNOWN INDICATION
     Dosage: 5 MG, UNK
     Route: 065
     Dates: start: 20171227, end: 20180102
  4. PROPRANOLOL [Concomitant]
     Active Substance: PROPRANOLOL HYDROCHLORIDE
  5. POTASSIUM [Concomitant]
     Active Substance: POTASSIUM
  6. NORCO [Concomitant]
     Active Substance: ACETAMINOPHEN\HYDROCODONE BITARTRATE
  7. GLIMEPIRIDE. [Concomitant]
     Active Substance: GLIMEPIRIDE
  8. LANTUS [Concomitant]
     Active Substance: INSULIN GLARGINE
  9. IBUPROFEN. [Concomitant]
     Active Substance: IBUPROFEN
  10. FUROSEMIDE. [Concomitant]
     Active Substance: FUROSEMIDE
  11. CEPHALEXIN                         /00145501/ [Concomitant]
     Active Substance: CEPHALEXIN
  12. ZETIA [Concomitant]
     Active Substance: EZETIMIBE

REACTIONS (1)
  - Death [Fatal]

NARRATIVE: CASE EVENT DATE: 20180102
